FAERS Safety Report 19105511 (Version 2)
Quarter: 2021Q2

REPORT INFORMATION
  Report Type: Report from Study
  Country: US (occurrence: US)
  Receive Date: 20210407
  Receipt Date: 20210510
  Transmission Date: 20210717
  Serious: Yes (Other)
  Sender: FDA-Public Use
  Company Number: US-OTSUKA-2021_011060

PATIENT
  Sex: Male

DRUGS (2)
  1. ASTX727 [Suspect]
     Active Substance: CEDAZURIDINE\DECITABINE
     Indication: KAPOSI^S SARCOMA
     Dosage: (35 MG DECITABINE AND 100 MG CEDAZURIDINE) ONCE DAILY ON DAYS 1?5 OF EACH 28 DAY CYCLE
     Route: 048
     Dates: start: 20210312
  2. ASTX727 [Suspect]
     Active Substance: CEDAZURIDINE\DECITABINE
     Indication: THROMBOCYTOPENIA

REACTIONS (4)
  - Blood count abnormal [Unknown]
  - Product use in unapproved indication [Unknown]
  - Asthenia [Unknown]
  - Constipation [Unknown]
